FAERS Safety Report 11749715 (Version 1)
Quarter: 2015Q4

REPORT INFORMATION
  Report Type: Report from Study
  Country: AU (occurrence: AU)
  Receive Date: 20151118
  Receipt Date: 20151118
  Transmission Date: 20160304
  Serious: Yes (Hospitalization, Other)
  Sender: FDA-Public Use
  Company Number: PHHY2015AU113486

PATIENT
  Age: 90 Year
  Sex: Female

DRUGS (5)
  1. SALBUTAMOL SULFATE [Concomitant]
     Active Substance: ALBUTEROL SULFATE
     Indication: ECZEMA
     Dosage: UNK, PRN
     Route: 065
     Dates: start: 201506
  2. LUCENTIS [Suspect]
     Active Substance: RANIBIZUMAB
     Dosage: 0.05 ML, UNK
     Route: 031
     Dates: start: 20150625, end: 20150625
  3. AMLODIPINE [Suspect]
     Active Substance: AMLODIPINE BESYLATE
     Indication: HYPERTENSION
     Dosage: 5 MG, QD
     Route: 065
     Dates: end: 20150731
  4. LUCENTIS [Suspect]
     Active Substance: RANIBIZUMAB
     Indication: NEOVASCULAR AGE-RELATED MACULAR DEGENERATION
     Dosage: 0.05 ML, UNK
     Route: 031
     Dates: start: 20140519
  5. ELEUPHRAT [Concomitant]
     Active Substance: BETAMETHASONE DIPROPIONATE
     Indication: ECZEMA
     Dosage: UNK UNK, PRN
     Route: 065
     Dates: start: 201506

REACTIONS (5)
  - Eczema [Recovering/Resolving]
  - Blister [Recovering/Resolving]
  - Urticaria [Recovering/Resolving]
  - Pemphigoid [Recovering/Resolving]
  - Disease progression [Recovering/Resolving]

NARRATIVE: CASE EVENT DATE: 201505
